FAERS Safety Report 8255588-X (Version None)
Quarter: 2012Q1

REPORT INFORMATION
  Report Type: 
  Country: None (occurrence: None)
  Receive Date: 20120322
  Receipt Date: 20120103
  Transmission Date: 20120608
  Serious: Yes (Hospitalization)
  Sender: FDA-Public Use
  Company Number: UTC-013041

PATIENT
  Age: 73 Year
  Sex: Male
  Weight: 90.45 kg

DRUGS (4)
  1. REVATIO [Concomitant]
  2. COUMADIN [Concomitant]
  3. TYVASO [Suspect]
     Indication: PULMONARY ARTERIAL HYPERTENSION
     Dosage: 216 MCG (54 MCG, 4 IN 1 D), INHALATION
     Route: 055
     Dates: start: 20111010
  4. TRACLEER [Concomitant]

REACTIONS (4)
  - RESPIRATORY FAILURE [None]
  - CORONARY ARTERY DISEASE [None]
  - RIGHT VENTRICULAR FAILURE [None]
  - HYPOXIA [None]
